FAERS Safety Report 6406455-5 (Version None)
Quarter: 2009Q4

REPORT INFORMATION
  Report Type: 
  Country: None (occurrence: None)
  Receive Date: 20091019
  Receipt Date: 20091007
  Transmission Date: 20100525
  Serious: Yes (Other)
  Sender: FDA-Public Use
  Company Number: FR-JNJCH-2009026915

PATIENT
  Age: 56 Year
  Sex: Female

DRUGS (3)
  1. CETIRIZINE HYDROCHLORIDE [Suspect]
     Indication: URTICARIA
     Dosage: TEXT:10 MG
     Route: 048
  2. VITAMINS [Concomitant]
     Indication: OVERWORK
     Dosage: TEXT:UNKNOWN
     Route: 065
  3. GENITO URINARY SYSTEM AND SEX HORMONES [Concomitant]
     Indication: MENOPAUSE
     Dosage: TEXT:UNKNOWN
     Route: 065

REACTIONS (1)
  - ORTHOSTATIC HYPOTENSION [None]
